FAERS Safety Report 12948368 (Version 1)
Quarter: 2016Q4

REPORT INFORMATION
  Report Type: Spontaneous
  Country: CH (occurrence: BR)
  Receive Date: 20161116
  Receipt Date: 20161116
  Transmission Date: 20170207
  Serious: Yes (Hospitalization, Disabling)
  Sender: FDA-Public Use
  Company Number: CH-LPDUSPRD-20161015

PATIENT
  Age: 88 Year
  Sex: Female

DRUGS (2)
  1. UNSPECIFIED ANTI DEPRESSANT [Concomitant]
     Dosage: DOSE UNKNOWN
     Route: 065
  2. FERINJECT [Suspect]
     Active Substance: FERRIC CARBOXYMALTOSE
     Dosage: UNSPECIFIED DOSE OF 1 AMPOULE
     Route: 042

REACTIONS (2)
  - Fall [Recovered/Resolved with Sequelae]
  - Urinary tract infection [Recovered/Resolved with Sequelae]

NARRATIVE: CASE EVENT DATE: 2016
